FAERS Safety Report 17534400 (Version 6)
Quarter: 2020Q4

REPORT INFORMATION
  Report Type: Report from Study
  Country: DE (occurrence: DE)
  Receive Date: 20200312
  Receipt Date: 20201111
  Transmission Date: 20210113
  Serious: Yes (Hospitalization)
  Sender: FDA-Public Use
  Company Number: DE-MYLANLABS-2020M1025604

PATIENT
  Age: 65 Year
  Sex: Male
  Weight: 86 kg

DRUGS (38)
  1. VEMURAFENIB. [Suspect]
     Active Substance: VEMURAFENIB
     Dosage: 960 MILLIGRAM, BID
     Route: 048
     Dates: start: 20191113, end: 20191211
  2. VEMURAFENIB. [Suspect]
     Active Substance: VEMURAFENIB
     Indication: METASTASES TO CENTRAL NERVOUS SYSTEM
     Dosage: 480 MILLIGRAM, BID
     Route: 048
     Dates: start: 20191212, end: 20200109
  3. COBIMETINIB. [Suspect]
     Active Substance: COBIMETINIB
     Indication: METASTASES TO CENTRAL NERVOUS SYSTEM
  4. PREDNISOLONE. [Suspect]
     Active Substance: PREDNISOLONE
     Dosage: 40 MILLIGRAM, BID (0.5 DAY)
     Route: 048
     Dates: start: 20200113
  5. COTRIMAZOL [Suspect]
     Active Substance: SULFAMETHOXAZOLE\TRIMETHOPRIM
     Dosage: 2400 MILLIGRAM 0.33 DAY
     Route: 048
     Dates: start: 20200113, end: 20200121
  6. COTRIMAZOL [Suspect]
     Active Substance: SULFAMETHOXAZOLE\TRIMETHOPRIM
     Indication: PNEUMOCYSTIS JIROVECII PNEUMONIA
     Dosage: 3 MILLILITER, QD, 1 MILLITER 0.33 DAY
     Route: 042
     Dates: start: 20200110
  7. FENTANYL. [Suspect]
     Active Substance: FENTANYL
     Indication: PAIN
     Dosage: 2.1 GRAM, Q3D
     Route: 061
  8. ENOXAPARIN SODIUM. [Concomitant]
     Active Substance: ENOXAPARIN SODIUM
     Indication: THROMBOSIS
     Dosage: UNK
  9. HYDROCORTISONE. [Concomitant]
     Active Substance: HYDROCORTISONE
     Dosage: 15 MILLIGRAM, BID (15 MILLIGRAM, 0.5 DAY)
     Route: 048
     Dates: start: 20200221
  10. HYDROCORTISONE. [Concomitant]
     Active Substance: HYDROCORTISONE
     Dosage: 15 MILLIGRAM, BID (15 MILLIGRAM, 0.5 DAY)
     Route: 048
     Dates: start: 20200201
  11. HYDROCHLOROTHIAZIDE. [Concomitant]
     Active Substance: HYDROCHLOROTHIAZIDE
     Indication: HYPERTENSION
     Dosage: 12.5 MILLIGRAM, QD
     Route: 048
  12. FENTANYL. [Suspect]
     Active Substance: FENTANYL
     Indication: BACK PAIN
  13. VEMURAFENIB. [Suspect]
     Active Substance: VEMURAFENIB
     Indication: MALIGNANT MELANOMA
     Dosage: 1920 MILLIGRAM, QD, 960 MILLIGRAM, 0.5 DAY
     Route: 048
     Dates: start: 20191113, end: 20191209
  14. COBIMETINIB. [Suspect]
     Active Substance: COBIMETINIB
     Indication: MALIGNANT MELANOMA
     Dosage: 60 MILLIGRAM, QD
     Route: 048
     Dates: start: 20191113
  15. PARACETAMOL [Concomitant]
     Active Substance: ACETAMINOPHEN
     Indication: PAIN
     Dosage: 1 GRAM, QD
     Route: 048
  16. METAMIZOLE [Concomitant]
     Active Substance: METAMIZOLE
     Indication: NEOPLASM MALIGNANT
     Dosage: 1500 MILLIGRAM, QD, (500 MILLIGRAM 0.33 DAY)
     Route: 048
  17. AMLODIPINE [Suspect]
     Active Substance: AMLODIPINE BESYLATE
     Indication: HYPERTENSION
     Dosage: 10 MILLIGRAM, QD
     Route: 048
  18. PREDNISOLONE. [Suspect]
     Active Substance: PREDNISOLONE
     Indication: PNEUMOCYSTIS JIROVECII PNEUMONIA
     Dosage: 80 MILLIGRAM, QD, 40 MILLIGRAM PER 0.5 DAY
     Route: 048
  19. PREDNISOLONE. [Suspect]
     Active Substance: PREDNISOLONE
     Dosage: 80 MILLIGRAM, BID (0.5 DAY)
     Route: 048
     Dates: start: 20200113, end: 20200131
  20. MOVICOL [Suspect]
     Active Substance: POLYETHYLENE GLYCOL 3350\POTASSIUM CHLORIDE\SODIUM BICARBONATE\SODIUM CHLORIDE
     Dosage: UNK UNK, QD (DAILY)
     Route: 048
     Dates: start: 20200110, end: 20200127
  21. MOVICOL [Suspect]
     Active Substance: POLYETHYLENE GLYCOL 3350\POTASSIUM CHLORIDE\SODIUM BICARBONATE\SODIUM CHLORIDE
     Dosage: 13.81 GRAM (0.33DAYS)
     Route: 048
     Dates: start: 20191227, end: 20191230
  22. COFFEINUM [Concomitant]
     Indication: NEOPLASM MALIGNANT
     Dosage: 600 MILLIGRAM, QD, 200 MILLIGRAM PER 0.33 DAY
     Route: 048
  23. LAXOBERAL [Concomitant]
     Active Substance: SODIUM PICOSULFATE
     Indication: CONSTIPATION PROPHYLAXIS
     Dosage: UNK
     Route: 048
     Dates: start: 20191230, end: 20191230
  24. PANTOPRAZOL                        /01263201/ [Concomitant]
     Active Substance: PANTOPRAZOLE
     Indication: PROPHYLAXIS
     Dosage: 40 MILLIGRAM, QD (PROPHYLAXIS TO TOLERANCE MANY MEDICATION)
     Route: 048
  25. DEXAMETHASONE. [Concomitant]
     Active Substance: DEXAMETHASONE
     Indication: PROPHYLAXIS
     Dosage: 8 MILLIGRAM, QD(ONGOING)
     Route: 048
     Dates: start: 20191126, end: 20200110
  26. DEXAMETHASONE. [Concomitant]
     Active Substance: DEXAMETHASONE
     Indication: METASTASES TO CENTRAL NERVOUS SYSTEM
     Dosage: 4 MILLIGRAM, QD
     Route: 048
     Dates: start: 20191210, end: 20191210
  27. COFFEINUM [Concomitant]
     Dosage: 200 MILLIGRAM PER 0.33 DAY
     Route: 048
  28. CANDESARTAN. [Concomitant]
     Active Substance: CANDESARTAN
     Indication: HYPERTENSION
     Dosage: 32 MILLIGRAM, QD, 16 MILLIGRAM PER 0.5 DAY
     Route: 048
  29. DEXAMETHASONE. [Concomitant]
     Active Substance: DEXAMETHASONE
     Dosage: 12 MILLIGRAM, QD (ONGOING)
     Route: 048
     Dates: start: 20191210
  30. DEXAMETHASONE. [Concomitant]
     Active Substance: DEXAMETHASONE
     Dosage: 4 MILLIGRAM
     Route: 048
     Dates: start: 20200110
  31. PREGABALIN. [Concomitant]
     Active Substance: PREGABALIN
     Dosage: 25 MILLIGRAM, BID (25 MILLIGRAM, 0.5/DAY)
     Route: 048
  32. COTRIM [Concomitant]
     Active Substance: SULFAMETHOXAZOLE\TRIMETHOPRIM
     Dosage: 400 MILLIGRAM, QD
     Route: 048
     Dates: start: 20200204
  33. VEMURAFENIB. [Suspect]
     Active Substance: VEMURAFENIB
     Dosage: 960 MILLIGRAM, QD, 480 MILLIGRAM, 0.5 DAY
     Route: 048
     Dates: start: 20191212
  34. MOVICOL [Suspect]
     Active Substance: POLYETHYLENE GLYCOL 3350\POTASSIUM CHLORIDE\SODIUM BICARBONATE\SODIUM CHLORIDE
     Indication: CONSTIPATION
     Dosage: 41.43 GRAM, QD, 13.81 PER 0.33 DAY
     Route: 048
     Dates: start: 20191227, end: 20191227
  35. COTRIMAZOL [Suspect]
     Active Substance: SULFAMETHOXAZOLE\TRIMETHOPRIM
     Indication: PNEUMOCYSTIS JIROVECII PNEUMONIA
     Dosage: 7200 MILLIGRAM, QD, 2400 MILLIGRAM 0.33 DAY
     Route: 048
     Dates: start: 20200113, end: 20200121
  36. COTRIMAZOL [Suspect]
     Active Substance: SULFAMETHOXAZOLE\TRIMETHOPRIM
     Dosage: 3 MILLILITER, QD
     Route: 042
     Dates: start: 20200113, end: 20200121
  37. LAXOBERAL [Concomitant]
     Active Substance: SODIUM PICOSULFATE
     Indication: CONSTIPATION
     Dosage: UNK
     Route: 048
     Dates: start: 20200122
  38. DEXAMETHASONE. [Concomitant]
     Active Substance: DEXAMETHASONE
     Dosage: 4 MILLIGRAM, QD (ONGOING)
     Route: 048
     Dates: end: 20200110

REACTIONS (20)
  - Myalgia [Recovered/Resolved]
  - Oral candidiasis [Recovered/Resolved]
  - Dyspnoea [Unknown]
  - Diarrhoea [Recovered/Resolved]
  - Vision blurred [Recovered/Resolved]
  - Pneumocystis jirovecii pneumonia [Recovered/Resolved]
  - Upper respiratory tract infection [Unknown]
  - Constipation [Not Recovered/Not Resolved]
  - Abdominal pain [Recovered/Resolved]
  - General physical health deterioration [Recovered/Resolved]
  - Myopia [Not Recovered/Not Resolved]
  - Oral herpes [Recovered/Resolved]
  - Hyperthyroidism [Not Recovered/Not Resolved]
  - Hyponatraemia [Recovered/Resolved]
  - Bronchitis [Recovered/Resolved]
  - Bronchiectasis [Recovering/Resolving]
  - Astigmatism [Not Recovered/Not Resolved]
  - Hyperglycaemia [Recovered/Resolved]
  - Fall [Unknown]
  - Vomiting [Unknown]

NARRATIVE: CASE EVENT DATE: 20191126
